FAERS Safety Report 5949182-0 (Version None)
Quarter: 2008Q4

REPORT INFORMATION
  Report Type: 
  Country: None (occurrence: None)
  Receive Date: 20081111
  Receipt Date: 20081103
  Transmission Date: 20090506
  Serious: Yes (Other)
  Sender: FDA-Public Use
  Company Number: US-CELGENEUS-163-21880-08100260

PATIENT
  Sex: Female

DRUGS (2)
  1. REVLIMID [Suspect]
     Indication: MULTIPLE MYELOMA
     Route: 048
     Dates: start: 20070917
  2. REVLIMID [Suspect]
     Route: 048
     Dates: start: 20070123, end: 20070901

REACTIONS (2)
  - CATARACT [None]
  - THROMBOSIS [None]
